FAERS Safety Report 4759254-4 (Version None)
Quarter: 2005Q3

REPORT INFORMATION
  Report Type: 
  Country: None (occurrence: None)
  Receive Date: 20050831
  Receipt Date: 20050818
  Transmission Date: 20060218
  Serious: Yes (Death)
  Sender: FDA-Public Use
  Company Number: 2005AL003278

PATIENT
  Age: 29 Year
  Sex: Female

DRUGS (1)
  1. KADIAN [Suspect]

REACTIONS (4)
  - MUSCULAR WEAKNESS [None]
  - OBSTRUCTIVE AIRWAYS DISORDER [None]
  - SOMNOLENCE [None]
  - TONSILLAR HYPERTROPHY [None]
